FAERS Safety Report 15798580 (Version 1)
Quarter: 2019Q1

REPORT INFORMATION
  Report Type: Spontaneous
  Country: US (occurrence: US)
  Receive Date: 20190108
  Receipt Date: 20190108
  Transmission Date: 20190417
  Serious: Yes (Life-Threatening, Hospitalization, Other)
  Sender: FDA-Public Use
  Company Number: PHHY2019US001694

PATIENT
  Age: 1 Year
  Sex: Female
  Weight: 9.4 kg

DRUGS (2)
  1. TIMOLOL MALEATE. [Suspect]
     Active Substance: TIMOLOL MALEATE
     Indication: INFANTILE HAEMANGIOMA
     Dosage: TOPICAL MEDICATION APPLIED TWICE DAILY BY PARENTS
     Route: 061
  2. TIMOLOL MALEATE. [Suspect]
     Active Substance: TIMOLOL MALEATE
     Indication: HAEMANGIOMA OF SKIN
     Dosage: CHILD INGESTED TIMOLOL SOLUTION
     Route: 048

REACTIONS (7)
  - Toxicity to various agents [Recovering/Resolving]
  - Hypoglycaemia [Recovered/Resolved]
  - Hyperhidrosis [Recovering/Resolving]
  - Accidental exposure to product by child [Recovering/Resolving]
  - Unresponsive to stimuli [Recovering/Resolving]
  - Lethargy [Recovering/Resolving]
  - Sinus bradycardia [Recovered/Resolved]
